FAERS Safety Report 15648772 (Version 1)
Quarter: 2018Q4

REPORT INFORMATION
  Report Type: Spontaneous
  Country: NL (occurrence: NL)
  Receive Date: 20181122
  Receipt Date: 20181122
  Transmission Date: 20190205
  Serious: Yes (Hospitalization)
  Sender: FDA-Public Use
  Company Number: NL-ASTRAZENECA-2005AC00674

PATIENT
  Age: 22545 Day
  Sex: Male
  Weight: 75 kg

DRUGS (4)
  1. ROSUVASTATIN. [Suspect]
     Active Substance: ROSUVASTATIN
     Indication: HYPERCHOLESTEROLAEMIA
     Route: 048
     Dates: start: 20041016
  2. SYMBICORT [Suspect]
     Active Substance: BUDESONIDE\FORMOTEROL FUMARATE DIHYDRATE
     Dosage: 100/6MCG 2 INHALATIONS DAILY
     Route: 055
     Dates: start: 19951001
  3. ACETYLSALICYLIC ACID [Suspect]
     Active Substance: ASPIRIN
     Route: 048
     Dates: start: 20041201
  4. NEBILET [Suspect]
     Active Substance: NEBIVOLOL
     Route: 048
     Dates: start: 20050301

REACTIONS (4)
  - Gait disturbance [Not Recovered/Not Resolved]
  - Tendon rupture [Recovered/Resolved]
  - Myalgia [Recovered/Resolved]
  - Tendonitis [Recovered/Resolved]

NARRATIVE: CASE EVENT DATE: 20050301
